FAERS Safety Report 11240040 (Version 1)
Quarter: 2015Q3

REPORT INFORMATION
  Report Type: Spontaneous
  Country: US (occurrence: None)
  Receive Date: 20150701
  Receipt Date: 20150701
  Transmission Date: 20151125
  Serious: No
  Sender: FDA-Public Use
  Company Number: None

PATIENT

DRUGS (2)
  1. ESTRADIOL TRANSDERMAL SYSTEM [Suspect]
     Active Substance: ESTRADIOL
     Indication: HYSTERECTOMY
     Dosage: SKIN PATCH/24 HRS
     Route: 061
     Dates: start: 20150325
  2. ESTRADIOL TRANSDERMAL SYSTEM [Suspect]
     Active Substance: ESTRADIOL
     Indication: MENOPAUSAL SYMPTOMS PROPHYLAXIS
     Dosage: SKIN PATCH/24 HRS
     Route: 061
     Dates: start: 20150325

REACTIONS (6)
  - Headache [None]
  - Depressed mood [None]
  - Device issue [None]
  - Night sweats [None]
  - Product substitution issue [None]
  - Product quality issue [None]

NARRATIVE: CASE EVENT DATE: 20150526
